FAERS Safety Report 18762112 (Version 1)
Quarter: 2021Q1

REPORT INFORMATION
  Report Type: Spontaneous
  Country: US (occurrence: US)
  Receive Date: 20210119
  Receipt Date: 20210119
  Transmission Date: 20210419
  Serious: No
  Sender: FDA-Public Use
  Company Number: None

PATIENT
  Age: 62 Year
  Sex: Female

DRUGS (1)
  1. BOTOX [Suspect]
     Active Substance: ONABOTULINUMTOXINA
     Indication: EARLY ONSET PRIMARY DYSTONIA
     Dosage: ?          OTHER FREQUENCY:NTHS ;EVERY 3 MONTHS?
     Route: 030
     Dates: start: 20200207

REACTIONS (2)
  - Brain cancer metastatic [None]
  - Chemotherapy [None]

NARRATIVE: CASE EVENT DATE: 20210118
